FAERS Safety Report 16786592 (Version 1)
Quarter: 2019Q3

REPORT INFORMATION
  Report Type: Spontaneous
  Country: US (occurrence: US)
  Receive Date: 20190718
  Receipt Date: 20190718
  Transmission Date: 20191005
  Serious: Yes (Hospitalization)
  Sender: FDA-Public Use
  Company Number: None

PATIENT
  Age: 78 Year
  Sex: Female

DRUGS (1)
  1. INLYTA [Suspect]
     Active Substance: AXITINIB
     Route: 048
     Dates: start: 201906

REACTIONS (4)
  - Blood pressure increased [None]
  - Tremor [None]
  - Therapy cessation [None]
  - Pyrexia [None]

NARRATIVE: CASE EVENT DATE: 20190718
